FAERS Safety Report 15353940 (Version 1)
Quarter: 2018Q3

REPORT INFORMATION
  Report Type: Report from Study
  Country: FR (occurrence: FR)
  Receive Date: 20180905
  Receipt Date: 20180905
  Transmission Date: 20181010
  Serious: Yes (Other)
  Sender: FDA-Public Use
  Company Number: FR-BRISTOL-MYERS SQUIBB COMPANY-BMS-2018-082000

PATIENT

DRUGS (1)
  1. IPILIMUMAB [Suspect]
     Active Substance: IPILIMUMAB
     Indication: HAEMATOLOGICAL MALIGNANCY
     Dosage: 5 MG/KG, UNK
     Route: 065

REACTIONS (1)
  - Chronic graft versus host disease [Unknown]
